FAERS Safety Report 6769835-4 (Version None)
Quarter: 2010Q2

REPORT INFORMATION
  Report Type: 
  Country: None (occurrence: None)
  Receive Date: 20100615
  Receipt Date: 20100610
  Transmission Date: 20101027
  Serious: Yes (Other)
  Sender: FDA-Public Use
  Company Number: US-B.I. PHARMACEUTICALS,INC./RIDGEFIELD-2010-BP-03865PF

PATIENT
  Sex: Female
  Weight: 49.9 kg

DRUGS (15)
  1. SPIRIVA [Suspect]
     Indication: CHRONIC OBSTRUCTIVE PULMONARY DISEASE
     Dosage: 18 MCG
     Route: 055
  2. LYRICA [Suspect]
     Dosage: 200 MG
  3. PROAIR HFA [Concomitant]
  4. ASPIRIN [Concomitant]
  5. PROMETHAZINE [Concomitant]
  6. ASMANEX TWISTHALER [Concomitant]
  7. CYMBALTA [Concomitant]
  8. LEXAPRO [Concomitant]
  9. VITAMIN B-12 [Concomitant]
  10. LORAZEPAM [Concomitant]
  11. VITAMIN D [Concomitant]
  12. SKELAXIN [Concomitant]
  13. NEXIUM [Concomitant]
  14. KETOCONAZOLE SHAMPOO 2% [Concomitant]
  15. CLOBETASOL PROPIONATE [Concomitant]

REACTIONS (3)
  - BREAST CANCER [None]
  - FIBROMYALGIA [None]
  - SEBORRHOEIC DERMATITIS [None]
